FAERS Safety Report 24832689 (Version 1)
Quarter: 2025Q1

REPORT INFORMATION
  Report Type: Spontaneous
  Country: US (occurrence: US)
  Receive Date: 20250110
  Receipt Date: 20250110
  Transmission Date: 20250409
  Serious: No
  Sender: MERCK
  Company Number: US-009507513-2501USA001432

PATIENT
  Age: 69 Year
  Sex: Male

DRUGS (3)
  1. PRIMAXIN IV [Suspect]
     Active Substance: CILASTATIN SODIUM\IMIPENEM
     Dates: start: 20241112
  2. AZITHROMYCIN [Suspect]
     Active Substance: AZITHROMYCIN
     Dates: start: 20241112
  3. LINEZOLID [Suspect]
     Active Substance: LINEZOLID
     Dates: start: 20241112

REACTIONS (2)
  - Wound complication [Unknown]
  - Wound infection [Unknown]

NARRATIVE: CASE EVENT DATE: 20241125
